FAERS Safety Report 5403941-1 (Version None)
Quarter: 2007Q3

REPORT INFORMATION
  Report Type: 
  Country: None (occurrence: None)
  Receive Date: 20070802
  Receipt Date: 20070723
  Transmission Date: 20080115
  Serious: Yes (Other)
  Sender: FDA-Public Use
  Company Number: US-ASTRAZENECA-2007AC01312

PATIENT
  Age: 59 Year
  Sex: Male

DRUGS (1)
  1. TAMOXIFEN CITRATE [Suspect]
     Indication: MIXED OLIGO-ASTROCYTOMA
     Dosage: CUMULATIVE DOSE OF 730 G
     Route: 048

REACTIONS (2)
  - MACULAR OEDEMA [None]
  - MACULOPATHY [None]
